FAERS Safety Report 5276404-4 (Version None)
Quarter: 2007Q1

REPORT INFORMATION
  Report Type: 
  Country: None (occurrence: None)
  Receive Date: 20061213
  Receipt Date: 20040119
  Transmission Date: 20070707
  Serious: Yes (Hospitalization)
  Sender: FDA-Public Use
  Company Number: 2004UW00947

PATIENT
  Age: 24 Year
  Sex: Male
  Weight: 81.1939 kg

DRUGS (1)
  1. SEROQUEL [Suspect]

REACTIONS (1)
  - OVERDOSE [None]
